FAERS Safety Report 8304446-0 (Version None)
Quarter: 2012Q2

REPORT INFORMATION
  Report Type: 
  Country: None (occurrence: None)
  Receive Date: 20120423
  Receipt Date: 20120322
  Transmission Date: 20120825
  Serious: No
  Sender: FDA-Public Use
  Company Number: US-PFIZER INC-2012075600

PATIENT
  Sex: Female

DRUGS (6)
  1. PROTONIX [Suspect]
     Dosage: UNK
  2. GLUCOTROL [Suspect]
     Dosage: UNK
  3. DIFLUCAN [Suspect]
     Dosage: UNK
  4. TESSALON [Suspect]
     Dosage: UNK
     Route: 048
  5. LIPITOR [Suspect]
     Dosage: UNK
  6. NORVASC [Suspect]
     Dosage: UNK

REACTIONS (3)
  - ABDOMINAL DISCOMFORT [None]
  - INCORRECT DOSE ADMINISTERED [None]
  - MALAISE [None]
